FAERS Safety Report 7374489-2 (Version None)
Quarter: 2011Q1

REPORT INFORMATION
  Report Type: 
  Country: None (occurrence: None)
  Receive Date: 20110325
  Receipt Date: 20110214
  Transmission Date: 20110831
  Serious: No
  Sender: FDA-Public Use
  Company Number: US-MYLANLABS-2011S1001146

PATIENT
  Age: 66 Year
  Sex: Female

DRUGS (5)
  1. PREMARIN [Concomitant]
  2. AMITRIPTYLINE [Concomitant]
  3. CHLORTHALIDONE [Concomitant]
  4. FENTANYL-100 [Suspect]
     Indication: PAIN
     Dosage: Q48H
     Route: 062
     Dates: start: 20100101
  5. LISINOPRIL [Concomitant]

REACTIONS (5)
  - DRUG WITHDRAWAL SYNDROME [None]
  - DRUG EFFECT DECREASED [None]
  - CRYING [None]
  - PAIN [None]
  - DEPRESSION [None]
